FAERS Safety Report 17933973 (Version 2)
Quarter: 2022Q1

REPORT INFORMATION
  Report Type: Spontaneous
  Country: FR (occurrence: FR)
  Receive Date: 20200624
  Receipt Date: 20220308
  Transmission Date: 20220423
  Serious: Yes (Disabling, Other)
  Sender: FDA-Public Use
  Company Number: None

PATIENT
  Age: 62 Year
  Sex: Male

DRUGS (6)
  1. ALPRAZOLAM [Suspect]
     Active Substance: ALPRAZOLAM
     Indication: Depression
     Dosage: 1 DF, QD (0.5 MG) (BREAKABLE TABLET)
     Route: 048
     Dates: start: 2018
  2. LORMETAZEPAM [Suspect]
     Active Substance: LORMETAZEPAM
     Indication: Depression
     Dosage: 1 DF, QD
     Route: 048
     Dates: start: 2018
  3. QUETIAPINE [Suspect]
     Active Substance: QUETIAPINE
     Indication: Depression
     Dosage: 1 DF, QD
     Route: 048
     Dates: start: 2018
  4. TERALITHE [Suspect]
     Active Substance: LITHIUM CARBONATE
     Indication: Depression
     Dosage: 2 DF, QD (400 MG)
     Route: 048
     Dates: start: 2018
  5. TRIMEPRAZINE [Suspect]
     Active Substance: TRIMEPRAZINE
     Indication: Depression
     Dosage: 15 (DROP, 1/12 ML), QD
     Route: 048
     Dates: start: 2018
  6. LOXAPINE [Suspect]
     Active Substance: LOXAPINE
     Indication: Depression
     Dosage: 1 DF, QD (50 MG)
     Route: 048
     Dates: start: 2018

REACTIONS (2)
  - Tremor [Not Recovered/Not Resolved]
  - Muscular weakness [Not Recovered/Not Resolved]

NARRATIVE: CASE EVENT DATE: 20180101
